FAERS Safety Report 21608250 (Version 1)
Quarter: 2022Q4

REPORT INFORMATION
  Report Type: Spontaneous
  Country: BR (occurrence: BR)
  Receive Date: 20221117
  Receipt Date: 20221117
  Transmission Date: 20230112
  Serious: Yes (Other)
  Sender: FDA-Public Use
  Company Number: BR-CELLTRION INC.-2022BR014565

PATIENT

DRUGS (4)
  1. INFLIXIMAB [Suspect]
     Active Substance: INFLIXIMAB
     Indication: Psoriasis
     Dosage: EVERY 60 DAYS
     Route: 042
  2. CAPTOPRIL [Concomitant]
     Active Substance: CAPTOPRIL
     Dosage: UNK MG
  3. COMPLEX B [VITAMIN B COMPLEX] [Concomitant]
  4. FOLIC ACID [Concomitant]
     Active Substance: FOLIC ACID

REACTIONS (2)
  - Renal failure [Unknown]
  - Product dose omission issue [Unknown]
